FAERS Safety Report 5432972-0 (Version None)
Quarter: 2007Q3

REPORT INFORMATION
  Report Type: 
  Country: None (occurrence: None)
  Receive Date: 20070831
  Receipt Date: 20070823
  Transmission Date: 20080115
  Serious: Yes (Hospitalization)
  Sender: FDA-Public Use
  Company Number: PHHO2007DE14020

PATIENT
  Sex: Female
  Weight: 76 kg

DRUGS (2)
  1. NEORAL [Suspect]
     Indication: RENAL TRANSPLANT
     Dosage: 200MG DAILY
     Route: 048
     Dates: start: 20070401
  2. MYCOPHENOLATE MOFETIL [Suspect]
     Indication: RENAL TRANSPLANT
     Dosage: 2000MG DAILY
     Route: 048
     Dates: start: 20070401

REACTIONS (5)
  - ASCITES [None]
  - ASTHENIA [None]
  - DYSPNOEA [None]
  - OEDEMA PERIPHERAL [None]
  - URINARY TRACT INFECTION [None]
